FAERS Safety Report 10027334 (Version 2)
Quarter: 2014Q2

REPORT INFORMATION
  Report Type: Spontaneous
  Country: IT (occurrence: None)
  Receive Date: 20140318
  Receipt Date: 20140415
  Transmission Date: 20141212
  Serious: Yes (Hospitalization)
  Sender: FDA-Public Use
  Company Number: AUR-APL-2014-02698

PATIENT
  Age: 66 Year
  Sex: Male

DRUGS (9)
  1. IRBESARTAN [Suspect]
     Indication: HYPERTENSION
     Route: 048
     Dates: start: 20130101, end: 20140210
  2. SPIRONOLACTONE [Suspect]
     Indication: HYPERTENSION
     Route: 048
     Dates: start: 20130101, end: 20140210
  3. LASIX (FUROSEMIDE) [Concomitant]
  4. CARDIOASPIRIN (ACETYLSALICYLIC ACID) [Concomitant]
  5. DILATREND (CARVEDILOL) [Concomitant]
  6. ATOVASTATIN (ATOVASTATIN) [Concomitant]
  7. RANITIDINE (RANITIDINE) [Concomitant]
  8. TRIMETAZIDINE (TRIMETAZIDINE) [Concomitant]
  9. HYDROCHLOROTHIAZIDE (HYDROCHLOROTHIAZIDE) [Concomitant]

REACTIONS (5)
  - Abdominal pain upper [None]
  - Nausea [None]
  - Vomiting [None]
  - Angina unstable [None]
  - Cold sweat [None]
